FAERS Safety Report 4878110-4 (Version None)
Quarter: 2006Q1

REPORT INFORMATION
  Report Type: 
  Country: None (occurrence: None)
  Receive Date: 20060110
  Receipt Date: 20060105
  Transmission Date: 20060701
  Serious: Yes (Hospitalization)
  Sender: FDA-Public Use
  Company Number: 2005-133577-NL

PATIENT
  Age: 57 Year
  Sex: Male

DRUGS (4)
  1. MIRTAZAPINE [Suspect]
     Dosage: 15 MG ORAL
     Route: 048
     Dates: start: 20050216, end: 20050316
  2. OLANZAPINE [Suspect]
     Dosage: 10 MG ORAL
     Route: 048
     Dates: start: 20050224, end: 20050316
  3. CITALOPRAM HYDROBROMIDE [Suspect]
     Dosage: /80 MG ORAL
     Route: 048
     Dates: start: 20050124, end: 20050202
  4. CITALOPRAM HYDROBROMIDE [Suspect]
     Dosage: /80 MG ORAL
     Route: 048
     Dates: start: 20050203, end: 20050316

REACTIONS (1)
  - ILEUS [None]
